FAERS Safety Report 7491938-X (Version None)
Quarter: 2011Q2

REPORT INFORMATION
  Report Type: 
  Country: None (occurrence: None)
  Receive Date: 20110518
  Receipt Date: 20110518
  Transmission Date: 20111010
  Serious: Yes (Other)
  Sender: FDA-Public Use
  Company Number: None

PATIENT
  Sex: Female
  Weight: 66.2252 kg

DRUGS (1)
  1. BENAZEPRIL HYDROCHLORIDE [Suspect]
     Indication: HYPERTENSION
     Dosage: 10 MG ONCE DAY ORAL 047
     Route: 048
     Dates: start: 20110421

REACTIONS (3)
  - PRESYNCOPE [None]
  - HEADACHE [None]
  - PALPITATIONS [None]
